FAERS Safety Report 5306808-2 (Version None)
Quarter: 2007Q2

REPORT INFORMATION
  Report Type: 
  Country: None (occurrence: None)
  Receive Date: 20070425
  Receipt Date: 20070416
  Transmission Date: 20071010
  Serious: Yes (Other)
  Sender: FDA-Public Use
  Company Number: CA-JNJFOC-20070403412

PATIENT
  Sex: Male
  Weight: 142.88 kg

DRUGS (1)
  1. REMICADE [Suspect]
     Indication: DRUG USE FOR UNKNOWN INDICATION
     Route: 042

REACTIONS (5)
  - FATIGUE [None]
  - HEART RATE DECREASED [None]
  - OEDEMA PERIPHERAL [None]
  - PALLOR [None]
  - PITTING OEDEMA [None]
